FAERS Safety Report 19746378 (Version 3)
Quarter: 2021Q3

REPORT INFORMATION
  Report Type: Report from Study
  Country: ES (occurrence: ES)
  Receive Date: 20210826
  Receipt Date: 20210908
  Transmission Date: 20211014
  Serious: Yes (Life-Threatening, Hospitalization, Other)
  Sender: FDA-Public Use
  Company Number: ES-BRISTOL-MYERS SQUIBB COMPANY-BMS-2021-055459

PATIENT
  Age: 60 Year
  Sex: Male
  Weight: 85 kg

DRUGS (66)
  1. ERYTHROMYCIN. [Concomitant]
     Active Substance: ERYTHROMYCIN
     Indication: GASTRITIS
     Dosage: 1 DOSAGE FORM, Q8H
     Route: 048
     Dates: start: 20210212
  2. GELCLAIR [HYALURONATE SODIUM;POVIDONE] [Concomitant]
     Indication: GASTRITIS
     Dosage: 1 DOSAGE FORM, Q8H
     Route: 048
     Dates: start: 20210215
  3. NISTATIN [Concomitant]
     Active Substance: NYSTATIN
     Indication: GASTRITIS
     Dosage: 1 DOSAGE FORM, Q8H
     Route: 048
     Dates: start: 20210217
  4. LORAZEPAM. [Concomitant]
     Active Substance: LORAZEPAM
     Dosage: 0.5 MICROGRAM, BID
     Route: 048
     Dates: start: 20210521
  5. DIAZEPAM. [Concomitant]
     Active Substance: DIAZEPAM
     Indication: PAIN
     Dosage: 5 MILLIGRAM,AS NEEDED
     Route: 042
     Dates: start: 20210508
  6. METHYLPREDNISOLONE. [Concomitant]
     Active Substance: METHYLPREDNISOLONE
     Indication: PAIN
     Dosage: 60 MILLIGRAM, QD
     Route: 042
     Dates: start: 20210526, end: 20210528
  7. NIVOLUMAB [Suspect]
     Active Substance: NIVOLUMAB
     Indication: NON-SMALL CELL LUNG CANCER
     Dosage: 360 MILLIGRAM
     Route: 042
     Dates: start: 20201218, end: 20210506
  8. ENALAPRIL [Concomitant]
     Active Substance: ENALAPRIL
     Dosage: 20 MILLIGRAM, QD
     Route: 048
     Dates: start: 20210212
  9. ONDANSETRON [Concomitant]
     Active Substance: ONDANSETRON
     Dosage: 8 MILLIGRAM, BID
     Route: 048
     Dates: start: 20201218
  10. FUROSEMIDE. [Concomitant]
     Active Substance: FUROSEMIDE
     Indication: PAIN
     Dosage: 20 MILLIGRAM, QD
     Route: 042
     Dates: start: 20210514
  11. HIBOR [Concomitant]
     Dosage: 1 DOSAGE FORM=7500 UNITS NOS, QD
     Route: 058
     Dates: start: 20210528
  12. BUSCAPINE [Concomitant]
     Active Substance: BUTYLSCOPOLAMINE
     Dosage: 40 MILLIGRAM, Q6H
     Route: 042
     Dates: start: 20210526, end: 20210528
  13. METHYLPREDNISOLONE. [Concomitant]
     Active Substance: METHYLPREDNISOLONE
     Dosage: 140 MILLIGRAM,ONCE
     Route: 042
     Dates: start: 20210529, end: 20210529
  14. METHYLPREDNISOLONE. [Concomitant]
     Active Substance: METHYLPREDNISOLONE
     Dosage: 120 MILLIGRAM, QD
     Route: 042
     Dates: start: 20210530
  15. MST CONTINUS [Concomitant]
     Active Substance: MORPHINE SULFATE
     Indication: PAIN
     Dosage: 20 MILLIGRAM, BID
     Route: 048
     Dates: start: 20210531
  16. MST CONTINUS [Concomitant]
     Active Substance: MORPHINE SULFATE
     Indication: GASTRITIS
     Dosage: 30 MILLIGRAM
     Route: 048
     Dates: start: 20210531
  17. PANTOPRAZOLE [Concomitant]
     Active Substance: PANTOPRAZOLE
     Dosage: 40 MILLIGRAM
     Route: 048
     Dates: start: 20210531
  18. ALMAGATO [Concomitant]
     Active Substance: ALMAGATE
     Dosage: 1.5 GRAMAS NEEDED
     Route: 048
     Dates: start: 20210316
  19. MORPHINE [Concomitant]
     Active Substance: MORPHINE
     Dosage: 5 MILLIGRAM,AS NEEDED
     Route: 058
     Dates: start: 20210525
  20. BUSCAPINE [Concomitant]
     Active Substance: BUTYLSCOPOLAMINE
     Dosage: 10 MILLIGRAM, Q6H
     Route: 048
     Dates: start: 20210531
  21. MORPHINE [Concomitant]
     Active Substance: MORPHINE
     Dosage: 10 MILLIGRAM, AS NEEDED
     Route: 058
     Dates: start: 20210607, end: 20210616
  22. PACLITAXEL. [Suspect]
     Active Substance: PACLITAXEL
     Indication: NON-SMALL CELL LUNG CANCER
     Dosage: 348 MILLIGRAM
     Route: 065
     Dates: start: 20201218, end: 20210208
  23. ACETAMINOPHEN. [Concomitant]
     Active Substance: ACETAMINOPHEN
     Indication: PAIN
     Dosage: 1 GRAM, TID
     Route: 042
     Dates: start: 20210316
  24. MORPHINE [Concomitant]
     Active Substance: MORPHINE
     Indication: PAIN
     Dosage: 1 DOSAGE FORM=1UNIT NOS, EVERY 4 HOURS
     Route: 058
     Dates: start: 20210211
  25. MORPHINE [Concomitant]
     Active Substance: MORPHINE
     Indication: GASTRITIS
     Dosage: 2 MILLIGRAM AS NEEDED
     Route: 058
     Dates: start: 20210316
  26. MORPHINE [Concomitant]
     Active Substance: MORPHINE
     Dosage: 5 MILLIGRAM,EVERY 4 HOURS
     Route: 058
     Dates: start: 20210521, end: 20210525
  27. MORPHINE [Concomitant]
     Active Substance: MORPHINE
     Dosage: 8 MILLIGRAM,EVERY 4 HOURS
     Route: 058
     Dates: start: 20210529
  28. METAMIZOL [Concomitant]
     Active Substance: METAMIZOLE SODIUM
     Indication: GASTRITIS
     Dosage: 2 GRAM ,AS NEEDED
     Route: 042
     Dates: start: 20210316
  29. METAMIZOL [Concomitant]
     Active Substance: METAMIZOLE SODIUM
     Dosage: 575 MILLIGRAM, Q6H
     Route: 048
     Dates: start: 20210531
  30. MIRTAZAPINE. [Concomitant]
     Active Substance: MIRTAZAPINE
     Indication: PAIN
     Dosage: 30 MILLIGRAM, QD
     Route: 060
     Dates: start: 20210514
  31. BUSCAPINE [Concomitant]
     Active Substance: BUTYLSCOPOLAMINE
     Indication: PAIN
     Dosage: 20 MILLIGRAM, Q4H
     Route: 042
     Dates: start: 20210520, end: 20210530
  32. FENTANYL. [Concomitant]
     Active Substance: FENTANYL
     Indication: PAIN
     Dosage: 100 MICROGRAM,AS NEEDED
     Route: 060
     Dates: start: 20210520
  33. ORFIDAL [Concomitant]
     Active Substance: LORAZEPAM
     Indication: PROPHYLAXIS
     Dosage: 1 MILLIGRAM, AS NEEDED
     Route: 048
     Dates: start: 20210111
  34. PANTOPRAZOLE [Concomitant]
     Active Substance: PANTOPRAZOLE
     Dosage: 80 MILLIGRAM
     Route: 042
     Dates: start: 20210316
  35. ACETAMINOPHEN. [Concomitant]
     Active Substance: ACETAMINOPHEN
     Dosage: 3 TIMES PER DAY
     Route: 048
     Dates: start: 20210531
  36. RABEPRAZOL [RABEPRAZOLE SODIUM] [Concomitant]
     Indication: PROPHYLAXIS
     Dosage: 20 MILLIGRAM, BID
     Route: 048
     Dates: start: 20210111
  37. ALMAGATO [Concomitant]
     Active Substance: ALMAGATE
     Indication: GASTRITIS
     Dosage: 1.5 GRAM, QD
     Route: 048
     Dates: start: 20210211
  38. MORPHINE [Concomitant]
     Active Substance: MORPHINE
     Dosage: 3 MILLIGRAMAS NEEDED
     Route: 058
     Dates: start: 20210513, end: 20210525
  39. MORPHINE [Concomitant]
     Active Substance: MORPHINE
     Dosage: 7 MILLIGRAM,EVERY 4 HOURS
     Route: 058
     Dates: start: 20210525, end: 20210529
  40. PUNTUAL [Concomitant]
     Indication: GASTRITIS
     Dosage: 1 DOSAGE FORM, QD
     Route: 048
     Dates: start: 20210211
  41. METAMIZOL [Concomitant]
     Active Substance: METAMIZOLE SODIUM
     Indication: PAIN
     Dosage: 1 DOSAGE FORM, Q8H
     Route: 048
     Dates: start: 20210218
  42. ONDANSETRON [Concomitant]
     Active Substance: ONDANSETRON
     Indication: PROPHYLAXIS
     Dosage: 8 MILLIGRAM, BID
     Route: 042
     Dates: start: 20210316
  43. DEXKETOPROFEN [Concomitant]
     Active Substance: DEXKETOPROFEN
     Indication: PAIN
     Dosage: 50 MILLIGRAM, TID
     Route: 042
     Dates: start: 20210508, end: 20210526
  44. TIAMINA [THIAMINE] [Concomitant]
     Indication: PAIN
     Dosage: 100 MILLIGRAM, QD
     Route: 042
     Dates: start: 20210518
  45. BICARBONATE [Concomitant]
     Active Substance: SODIUM BICARBONATE
     Indication: PRODUCT USED FOR UNKNOWN INDICATION
     Dosage: 1 DOSAGE FORM, QD
     Route: 048
     Dates: start: 20210317
  46. MORPHINE [Concomitant]
     Active Substance: MORPHINE
     Indication: UPPER GASTROINTESTINAL HAEMORRHAGE
     Dosage: 10 MILLIGRAM, Q4H
     Route: 058
     Dates: start: 20210607, end: 20210610
  47. MST CONTINUS [Concomitant]
     Active Substance: MORPHINE SULFATE
     Dosage: 15 MILLIGRAM
     Route: 048
     Dates: start: 20210216
  48. PANTOPRAZOLE [Concomitant]
     Active Substance: PANTOPRAZOLE
     Indication: GASTRITIS
     Dosage: 40 MILLIGRAM
     Route: 042
     Dates: start: 20210316
  49. IBUPROFEN. [Concomitant]
     Active Substance: IBUPROFEN
     Indication: GASTRITIS
     Dosage: 600 MILLIGRAM, Q8H
     Route: 050
     Dates: start: 20210215
  50. IPILIMUMAB [Suspect]
     Active Substance: IPILIMUMAB
     Indication: NON-SMALL CELL LUNG CANCER
     Dosage: 76.7 MILLIGRAM
     Route: 042
     Dates: start: 20210409, end: 20210409
  51. CARBOPLATIN. [Suspect]
     Active Substance: CARBOPLATIN
     Indication: NON-SMALL CELL LUNG CANCER
     Dosage: 570 MILLIGRAM
     Route: 065
     Dates: start: 20201218, end: 20210201
  52. ACETAMINOPHEN. [Concomitant]
     Active Substance: ACETAMINOPHEN
     Indication: GASTRITIS
     Dosage: 1 GRAM; AS NEEDED
     Route: 042
     Dates: start: 20210509
  53. MENAVEN [Concomitant]
     Indication: PHLEBITIS
     Dosage: 1 DOSAGE FORM, TID
     Route: 061
     Dates: start: 20210201
  54. ORAMORPH SR SUSTAINED RELEASE [Concomitant]
     Active Substance: MORPHINE SULFATE
     Indication: PRODUCT USED FOR UNKNOWN INDICATION
     Dosage: 1 DOSAGE FORM, AS NEEDED
     Route: 048
     Dates: start: 20210217
  55. BEMIPARIN [Concomitant]
     Active Substance: BEMIPARIN
     Indication: GASTRITIS
     Dosage: 1 DOSAGE FORM, QD
     Route: 058
     Dates: start: 20210316
  56. METOCLOPRAMIDE. [Concomitant]
     Active Substance: METOCLOPRAMIDE
     Indication: GASTRITIS
     Dosage: 10  MILLIGRAM ,AS NEEDED
     Route: 042
     Dates: start: 20210316
  57. LORAZEPAM. [Concomitant]
     Active Substance: LORAZEPAM
     Indication: PAIN
     Dosage: 1 MILLIGRAM, QD
     Route: 048
     Dates: start: 20210507
  58. BUSCAPINE [Concomitant]
     Active Substance: BUTYLSCOPOLAMINE
     Dosage: 1 DOSAGE FORM=1UNIT NOS, Q6H
     Route: 042
     Dates: start: 20210531
  59. METHYLPREDNISOLONE. [Concomitant]
     Active Substance: METHYLPREDNISOLONE
     Dosage: 20 MILLIGRAM, QD
     Route: 042
     Dates: start: 20210530
  60. ENALAPRIL [Concomitant]
     Active Substance: ENALAPRIL
     Indication: PROPHYLAXIS
     Dosage: 1 MILLIGRAM, QD
     Route: 048
     Dates: start: 20210111
  61. PANTOPRAZOLE [Concomitant]
     Active Substance: PANTOPRAZOLE
     Indication: PAIN
     Dosage: 1 DOSAGE FORM=20UNITS NOS, BID
     Route: 050
     Dates: start: 20210214
  62. PANTOPRAZOLE [Concomitant]
     Active Substance: PANTOPRAZOLE
     Dosage: 120 MILLIGRAM
     Route: 042
     Dates: start: 20210521
  63. CASENLAX [Concomitant]
     Indication: GASTRITIS
     Dosage: 10 GRAM, QD
     Route: 048
     Dates: start: 20210211
  64. ZIVEREL [Concomitant]
     Indication: PAIN
     Dosage: 1 DOSAGE FORM=1UNIT NOS, BID
     Route: 048
     Dates: start: 20210508
  65. HIBOR [Concomitant]
     Indication: PAIN
     Dosage: 1 DOSAGE FORM, QD
     Route: 058
     Dates: start: 20210517, end: 20210527
  66. TRANEXAMIC ACID. [Concomitant]
     Active Substance: TRANEXAMIC ACID
     Indication: ANAEMIA
     Dosage: 500 MILLIGRAM, TID
     Route: 042
     Dates: start: 20210520, end: 20210527

REACTIONS (2)
  - Upper gastrointestinal haemorrhage [Not Recovered/Not Resolved]
  - Arterial thrombosis [Recovered/Resolved]

NARRATIVE: CASE EVENT DATE: 20210607
